FAERS Safety Report 4637511-X (Version None)
Quarter: 2005Q2

REPORT INFORMATION
  Report Type: 
  Country: None (occurrence: None)
  Receive Date: 20050418
  Receipt Date: 20050406
  Transmission Date: 20051028
  Serious: Yes (Other)
  Sender: FDA-Public Use
  Company Number: US-AMGEN-US119686

PATIENT
  Sex: Male
  Weight: 80 kg

DRUGS (2)
  1. EPOGEN [Suspect]
     Indication: MYELODYSPLASTIC SYNDROME
     Dates: start: 20030601
  2. NEUPOGEN [Concomitant]
     Indication: MYELODYSPLASTIC SYNDROME
     Dates: start: 20040201

REACTIONS (4)
  - APLASIA PURE RED CELL [None]
  - BONE MARROW DEPRESSION [None]
  - LYMPHOPROLIFERATIVE DISORDER [None]
  - THERAPEUTIC RESPONSE DECREASED [None]
